FAERS Safety Report 6073559-9 (Version None)
Quarter: 2009Q1

REPORT INFORMATION
  Report Type: 
  Country: None (occurrence: None)
  Receive Date: 20090211
  Receipt Date: 20090129
  Transmission Date: 20090719
  Serious: Yes (Disabling, Other)
  Sender: FDA-Public Use
  Company Number: IT-ASTRAZENECA-2009SE00274

PATIENT
  Age: 61 Year
  Sex: Male

DRUGS (2)
  1. OMEPRAZEN [Suspect]
     Indication: GASTRITIS EROSIVE
     Route: 048
     Dates: start: 20080601, end: 20080614
  2. ESOPRAL [Suspect]
     Indication: GASTRITIS EROSIVE
     Route: 048
     Dates: start: 20080616, end: 20080630

REACTIONS (2)
  - NERVOUS SYSTEM DISORDER [None]
  - VISION BLURRED [None]
